FAERS Safety Report 9395832 (Version 2)
Quarter: 2013Q3

REPORT INFORMATION
  Report Type: Spontaneous
  Country: FR (occurrence: FR)
  Receive Date: 20130711
  Receipt Date: 20130821
  Transmission Date: 20140515
  Serious: Yes (Other)
  Sender: FDA-Public Use
  Company Number: FR-009507513-1307FRA002722

PATIENT
  Age: 44 Year
  Sex: Male
  Weight: 83 kg

DRUGS (1)
  1. ORGARAN [Suspect]
     Dosage: UNK
     Route: 042
     Dates: start: 20130601, end: 20130620

REACTIONS (4)
  - Pulmonary embolism [Recovered/Resolved]
  - Vena cava thrombosis [Unknown]
  - Deep vein thrombosis [Recovering/Resolving]
  - Incorrect dose administered [Recovered/Resolved]
